FAERS Safety Report 6528443-0 (Version None)
Quarter: 2010Q1

REPORT INFORMATION
  Report Type: 
  Country: None (occurrence: None)
  Receive Date: 20100106
  Receipt Date: 20100104
  Transmission Date: 20100710
  Serious: Yes (Hospitalization)
  Sender: FDA-Public Use
  Company Number: A0837797A

PATIENT
  Age: 45 Year
  Sex: Male

DRUGS (1)
  1. AVANDIA [Suspect]
     Dosage: 8MG TWICE PER DAY
     Route: 065
     Dates: start: 19990101, end: 20071001

REACTIONS (1)
  - MYOCARDIAL INFARCTION [None]
